FAERS Safety Report 21894409 (Version 11)
Quarter: 2025Q3

REPORT INFORMATION
  Report Type: Spontaneous
  Country: GB (occurrence: GB)
  Receive Date: 20230121
  Receipt Date: 20250728
  Transmission Date: 20251020
  Serious: Yes (Life-Threatening, Other)
  Sender: AUROBINDO
  Company Number: GB-AUROBINDO-AUR-APL-2023-002079

PATIENT
  Sex: Male

DRUGS (23)
  1. OXALIPLATIN [Suspect]
     Active Substance: OXALIPLATIN
     Indication: Richter^s syndrome
     Route: 065
     Dates: start: 20200111, end: 20210101
  2. BENDAMUSTINE HYDROCHLORIDE [Suspect]
     Active Substance: BENDAMUSTINE HYDROCHLORIDE
     Indication: Richter^s syndrome
     Dosage: UNK, ONCE A DAY
     Route: 065
     Dates: start: 20210108, end: 20210109
  3. CARBOPLATIN [Suspect]
     Active Substance: CARBOPLATIN
     Indication: Richter^s syndrome
     Route: 065
     Dates: start: 20200111, end: 20210101
  4. CARBOPLATIN [Suspect]
     Active Substance: CARBOPLATIN
     Route: 065
     Dates: start: 20200111, end: 20210101
  5. CISPLATIN [Suspect]
     Active Substance: CISPLATIN
     Indication: Richter^s syndrome
     Route: 065
     Dates: start: 20200111, end: 20210101
  6. CYCLOPHOSPHAMIDE [Suspect]
     Active Substance: CYCLOPHOSPHAMIDE
     Indication: Richter^s syndrome
     Route: 065
     Dates: start: 20150109, end: 20160102
  7. CYCLOPHOSPHAMIDE [Suspect]
     Active Substance: CYCLOPHOSPHAMIDE
     Route: 065
     Dates: start: 20200106, end: 20201010
  8. DOXORUBICIN HYDROCHLORIDE [Suspect]
     Active Substance: DOXORUBICIN HYDROCHLORIDE
     Indication: Richter^s syndrome
     Route: 065
     Dates: start: 20200106, end: 20200110
  9. FLUDARABINE [Suspect]
     Active Substance: FLUDARABINE PHOSPHATE
     Indication: Richter^s syndrome
     Route: 065
     Dates: start: 20150109, end: 20160102
  10. GEMCITABINE [Suspect]
     Active Substance: GEMCITABINE
     Indication: Richter^s syndrome
     Route: 065
     Dates: start: 20200111, end: 20210101
  11. IMBRUVICA [Suspect]
     Active Substance: IBRUTINIB
     Indication: Richter^s syndrome
     Route: 048
     Dates: start: 20200106, end: 20200110
  12. IMBRUVICA [Suspect]
     Active Substance: IBRUTINIB
     Route: 048
     Dates: start: 20201110
  13. POLATUZUMAB VEDOTIN [Suspect]
     Active Substance: POLATUZUMAB VEDOTIN
     Indication: Richter^s syndrome
     Route: 065
     Dates: start: 20210108, end: 20210109
  14. PREDNISONE [Suspect]
     Active Substance: PREDNISONE
     Indication: Richter^s syndrome
     Route: 065
     Dates: start: 20200106, end: 20200110
  15. RITUXIMAB [Suspect]
     Active Substance: RITUXIMAB
     Indication: Richter^s syndrome
     Route: 065
     Dates: start: 20150109, end: 20160201
  16. RITUXIMAB [Suspect]
     Active Substance: RITUXIMAB
     Route: 065
     Dates: start: 20190111, end: 20200106
  17. RITUXIMAB [Suspect]
     Active Substance: RITUXIMAB
     Route: 065
     Dates: start: 20200107, end: 20200110
  18. RITUXIMAB [Suspect]
     Active Substance: RITUXIMAB
     Route: 065
     Dates: start: 20210108, end: 20210109
  19. RITUXIMAB [Suspect]
     Active Substance: RITUXIMAB
     Route: 065
     Dates: start: 20150109, end: 20160201
  20. RITUXIMAB [Suspect]
     Active Substance: RITUXIMAB
     Route: 065
     Dates: start: 20150109, end: 20160201
  21. VENETOCLAX [Suspect]
     Active Substance: VENETOCLAX
     Indication: Richter^s syndrome
     Route: 048
     Dates: start: 20190111
  22. VINCRISTINE [Suspect]
     Active Substance: VINCRISTINE
     Indication: Richter^s syndrome
     Route: 065
     Dates: start: 20200106, end: 20200110
  23. VENETOCLAX [Suspect]
     Active Substance: VENETOCLAX
     Indication: Richter^s syndrome
     Route: 048
     Dates: start: 20190111, end: 20200106

REACTIONS (3)
  - Richter^s syndrome [Unknown]
  - Malignant neoplasm progression [Unknown]
  - Off label use [Unknown]

NARRATIVE: CASE EVENT DATE: 20210108
